FAERS Safety Report 16840539 (Version 2)
Quarter: 2019Q4

REPORT INFORMATION
  Report Type: Report from Study
  Country: JP (occurrence: JP)
  Receive Date: 20190923
  Receipt Date: 20191011
  Transmission Date: 20200122
  Serious: No
  Sender: FDA-Public Use
  Company Number: JP-ALLERGAN-1938178US

PATIENT
  Sex: Male

DRUGS (1)
  1. BOTULINUM TOXIN TYPE A - GENERAL (9060X) [Suspect]
     Active Substance: BOTULINUM TOXIN TYPE A
     Indication: MUSCLE SPASTICITY
     Dosage: 360 UNITS, SINGLE
     Route: 030
     Dates: start: 20180731, end: 20180731

REACTIONS (6)
  - Malaise [Unknown]
  - Musculoskeletal stiffness [Unknown]
  - Limb discomfort [Unknown]
  - Gait disturbance [Unknown]
  - Grip strength decreased [Unknown]
  - Drug ineffective [Unknown]

NARRATIVE: CASE EVENT DATE: 2018
